FAERS Safety Report 18974637 (Version 2)
Quarter: 2021Q1

REPORT INFORMATION
  Report Type: Spontaneous
  Country: IT (occurrence: IT)
  Receive Date: 20210305
  Receipt Date: 20210315
  Transmission Date: 20210420
  Serious: Yes (Other)
  Sender: FDA-Public Use
  Company Number: IT-BAYER-2021-096832

PATIENT
  Age: 38 Year
  Sex: Male
  Weight: 73 kg

DRUGS (3)
  1. UNIDROX [Suspect]
     Active Substance: PRULIFLOXACIN
     Indication: PROSTATITIS
     Dosage: 600 MG, QD
     Route: 048
     Dates: start: 20200104, end: 20200113
  2. CIPROXIN 500 MG [Suspect]
     Active Substance: CIPROFLOXACIN
     Indication: PROSTATITIS
     Dosage: 7500 MG, QD
     Route: 048
     Dates: start: 20191204, end: 20191218
  3. TOPSTER [Suspect]
     Active Substance: BECLOMETHASONE DIPROPIONATE
     Indication: PROSTATITIS
     Dosage: 3 MG, QD
     Route: 054
     Dates: start: 20200104, end: 20200113

REACTIONS (10)
  - Chest pain [Not Recovered/Not Resolved]
  - Abdominal pain [Not Recovered/Not Resolved]
  - Insomnia [Not Recovered/Not Resolved]
  - Arthralgia [Not Recovered/Not Resolved]
  - Arrhythmia [Not Recovered/Not Resolved]
  - Exercise tolerance decreased [Not Recovered/Not Resolved]
  - Anxiety [Not Recovered/Not Resolved]
  - Tinnitus [Not Recovered/Not Resolved]
  - Palpitations [Not Recovered/Not Resolved]
  - Neuropathy peripheral [Not Recovered/Not Resolved]

NARRATIVE: CASE EVENT DATE: 20200112
